FAERS Safety Report 8413255-3 (Version None)
Quarter: 2012Q2

REPORT INFORMATION
  Report Type: 
  Country: None (occurrence: None)
  Receive Date: 20120605
  Receipt Date: 20120528
  Transmission Date: 20120825
  Serious: Yes (Other)
  Sender: FDA-Public Use
  Company Number: BR-PFIZER INC-2012128637

PATIENT
  Sex: Male

DRUGS (2)
  1. VIAGRA [Suspect]
     Indication: PULMONARY ARTERIAL PRESSURE
     Dosage: 25 MG (ONE TABLET), 2X/DAY
     Route: 048
     Dates: start: 20110801, end: 20111210
  2. DIOVAN [Concomitant]
     Indication: BLOOD PRESSURE INCREASED
     Dosage: UNK

REACTIONS (2)
  - LIMB INJURY [None]
  - FALL [None]
